FAERS Safety Report 9009457 (Version 1)
Quarter: 2013Q1

REPORT INFORMATION
  Report Type: Spontaneous
  Country: AU (occurrence: AU)
  Receive Date: 20130112
  Receipt Date: 20130112
  Transmission Date: 20140127
  Serious: Yes (Hospitalization)
  Sender: FDA-Public Use
  Company Number: AU-AMGEN-AUSSP2013001687

PATIENT
  Age: 47 Year
  Sex: Female

DRUGS (1)
  1. PROLIA [Suspect]
     Indication: PRODUCT USED FOR UNKNOWN INDICATION
     Dosage: 60 MG, QD
     Dates: start: 20120515

REACTIONS (2)
  - Erysipelas [Not Recovered/Not Resolved]
  - Skin infection [Not Recovered/Not Resolved]
